FAERS Safety Report 5311572-7 (Version None)
Quarter: 2007Q1

REPORT INFORMATION
  Report Type: 
  Country: None (occurrence: None)
  Receive Date: 20070201
  Receipt Date: 20061212
  Transmission Date: 20070707
  Serious: No
  Sender: FDA-Public Use
  Company Number: 259320

PATIENT
  Age: 66 Year
  Sex: Male

DRUGS (3)
  1. LEVEMIR [Suspect]
     Indication: INSULIN-REQUIRING TYPE II DIABETES MELLITUS
     Dosage: 26 IU QD SUBCUTANEOUS
     Route: 058
     Dates: start: 20061001
  2. NOVOLOG [Suspect]
     Indication: INSULIN-REQUIRING TYPE II DIABETES MELLITUS
     Dosage: SLIDING SCALE, SUBCUTANEOUS
     Route: 058
     Dates: start: 20060801
  3. DICLOGESIC (DICLOFENAC DIETHYLAMINE) [Concomitant]

REACTIONS (1)
  - INJECTION SITE BRUISING [None]
